FAERS Safety Report 9723766 (Version 2)
Quarter: 2013Q4

REPORT INFORMATION
  Report Type: Spontaneous
  Country: CH (occurrence: CH)
  Receive Date: 20131202
  Receipt Date: 20131202
  Transmission Date: 20140711
  Serious: Yes (Hospitalization, Disabling, Other)
  Sender: FDA-Public Use
  Company Number: CH-TEVA-426246ISR

PATIENT
  Age: 51 Year
  Sex: Female
  Weight: 60 kg

DRUGS (18)
  1. XYLOMETAZOLINE [Suspect]
     Indication: PHARYNGITIS
     Route: 045
     Dates: start: 20110413, end: 20110415
  2. IBUPROFEN [Suspect]
     Indication: PHARYNGITIS
     Dosage: 1200 MILLIGRAM DAILY;
     Route: 065
     Dates: start: 201104
  3. PRAVASTATIN [Suspect]
     Indication: PRODUCT USED FOR UNKNOWN INDICATION
     Dosage: 20 MILLIGRAM DAILY;
     Route: 048
  4. TAMBOCOR 50 MG [Concomitant]
     Indication: ATRIAL TACHYCARDIA
     Dosage: 100 MILLIGRAM DAILY;
     Route: 065
     Dates: start: 2011
  5. TAMBOCOR 50 MG [Concomitant]
     Dosage: 50 MILLIGRAM DAILY; INCREASED IN 2011 TO 50 MG 2X/DAY
     Route: 065
     Dates: start: 2011, end: 2011
  6. TAMBOCOR 50 MG [Concomitant]
     Dosage: 100 MILLIGRAM DAILY; REDUCED IN 2011 TO 50 MG 1X/DAY
     Route: 065
     Dates: end: 2011
  7. CALCIMAGON-D3 [Concomitant]
     Indication: PRODUCT USED FOR UNKNOWN INDICATION
     Route: 048
  8. SEROPHY NASAL SPRAY [Concomitant]
     Indication: PHARYNGITIS
     Route: 065
     Dates: start: 201104
  9. SANGEROL SPRAY [Concomitant]
     Indication: PHARYNGITIS
     Route: 065
     Dates: start: 201104
  10. ZITHROMAX [Concomitant]
     Indication: PHARYNGITIS
     Route: 065
     Dates: start: 201104
  11. MAGNESIUM [Concomitant]
     Indication: PRODUCT USED FOR UNKNOWN INDICATION
     Route: 065
     Dates: start: 2011
  12. NIMOTOP 30 MG [Concomitant]
     Indication: PRODUCT USED FOR UNKNOWN INDICATION
     Dosage: 90 MILLIGRAM DAILY;
     Route: 065
     Dates: start: 2011, end: 20110609
  13. RESYL PLUS [Concomitant]
     Indication: COUGH
     Dosage: 20 GTT DAILY; 20 DROPS 3 TIMES PER DAY IN CASE OF COUGH
     Route: 065
     Dates: start: 2011
  14. NEXIUM 40 MG [Concomitant]
     Indication: PRODUCT USED FOR UNKNOWN INDICATION
     Dosage: 40 MILLIGRAM DAILY;
     Route: 065
     Dates: start: 2011
  15. MOVICOL SACHETS [Concomitant]
     Indication: CONSTIPATION
     Dosage: 1 DOSAGE FORMS DAILY; MAX. 2 SACHETS PER DAY IN CASE OF CONSTIPATION
     Route: 065
     Dates: start: 2011
  16. FOSAVANCE [Concomitant]
     Indication: PRODUCT USED FOR UNKNOWN INDICATION
     Route: 048
  17. DAFALGAN 1000 MG TABLETS [Concomitant]
     Indication: PAIN
     Dosage: 1000 MILLIGRAM DAILY; MAX. 4 TIMES PER DAY IN CASE OF PAIN
     Route: 048
  18. LYRICA [Concomitant]
     Indication: PRODUCT USED FOR UNKNOWN INDICATION
     Route: 065
     Dates: start: 2013

REACTIONS (21)
  - Cerebral vasoconstriction [Unknown]
  - Subarachnoid haemorrhage [Unknown]
  - Headache [Unknown]
  - Gait disturbance [Not Recovered/Not Resolved]
  - Back pain [Unknown]
  - Sensory disturbance [Not Recovered/Not Resolved]
  - Nuchal rigidity [Unknown]
  - Aphasia [Unknown]
  - Confusional state [Unknown]
  - Upper motor neurone lesion [Unknown]
  - Paraesthesia [Unknown]
  - Hepatic enzyme abnormal [Unknown]
  - Mononeuropathy [Unknown]
  - Arachnoid cyst [Not Recovered/Not Resolved]
  - Sensation of heaviness [Unknown]
  - Loss of proprioception [Unknown]
  - Hypoaesthesia [Unknown]
  - Reflexes abnormal [Unknown]
  - Myelomalacia [Unknown]
  - Extensor plantar response [Unknown]
  - Hyperreflexia [Unknown]
